FAERS Safety Report 5802458-X (Version None)
Quarter: 2008Q3

REPORT INFORMATION
  Report Type: 
  Country: None (occurrence: None)
  Receive Date: 20080708
  Receipt Date: 20080701
  Transmission Date: 20090109
  Serious: Yes (Life-Threatening, Other)
  Sender: FDA-Public Use
  Company Number: US-BAYER-200822074NA

PATIENT
  Age: 67 Year
  Sex: Female
  Weight: 87 kg

DRUGS (4)
  1. AVELOX [Suspect]
     Indication: RESPIRATORY TRACT INFECTION
     Dosage: TOTAL DAILY DOSE: 400 MG  UNIT DOSE: 400 MG
     Route: 048
  2. AVELOX [Suspect]
     Route: 048
     Dates: start: 20070101, end: 20070101
  3. ASTELIN [Concomitant]
     Indication: RHINITIS ALLERGIC
  4. ANTIHISTAMINES [Concomitant]
     Indication: RHINITIS ALLERGIC

REACTIONS (4)
  - ANAPHYLACTIC SHOCK [None]
  - BLOOD PRESSURE DECREASED [None]
  - FLUSHING [None]
  - PRURITUS [None]
